FAERS Safety Report 9699219 (Version 2)
Quarter: 2013Q4

REPORT INFORMATION
  Report Type: Spontaneous
  Country: US (occurrence: US)
  Receive Date: 20131120
  Receipt Date: 20131120
  Transmission Date: 20140711
  Serious: No
  Sender: FDA-Public Use
  Company Number: US-GILEAD-2008-0014859

PATIENT
  Sex: Male

DRUGS (11)
  1. LETAIRIS [Suspect]
     Indication: PULMONARY ARTERIAL HYPERTENSION
     Route: 048
     Dates: start: 20071002
  2. LETAIRIS [Suspect]
     Route: 048
     Dates: end: 200712
  3. SPIRONOLACTONE [Suspect]
     Indication: HYPERTENSION
     Route: 048
  4. VIAGRA [Concomitant]
     Indication: PULMONARY HYPERTENSION
     Route: 048
  5. ACCUPRIL [Concomitant]
     Indication: HYPERTENSION
     Route: 048
  6. TOPROL XL [Concomitant]
     Indication: HYPERTENSION
     Route: 048
  7. PROZAC [Concomitant]
     Indication: DEPRESSION
     Route: 048
  8. LIPITOR [Concomitant]
     Indication: HYPERLIPIDAEMIA
     Route: 048
  9. COUMADIN [Concomitant]
     Indication: EMBOLISM
     Route: 048
  10. NEXIUM [Concomitant]
     Indication: GASTROOESOPHAGEAL REFLUX DISEASE
     Route: 048
  11. REMERON [Concomitant]
     Dosage: QHS
     Route: 048

REACTIONS (4)
  - Influenza like illness [Recovered/Resolved]
  - Swelling [Recovered/Resolved]
  - Flushing [Recovered/Resolved]
  - Unevaluable event [Recovered/Resolved]
